FAERS Safety Report 9465883 (Version 3)
Quarter: 2013Q4

REPORT INFORMATION
  Report Type: Spontaneous
  Country: JP (occurrence: JP)
  Receive Date: 20130820
  Receipt Date: 20131001
  Transmission Date: 20140711
  Serious: Yes (Hospitalization, Other)
  Sender: FDA-Public Use
  Company Number: JP-BAYER-2013-099161

PATIENT
  Age: 56 Year
  Sex: Female
  Weight: 46 kg

DRUGS (8)
  1. STIVARGA [Suspect]
     Indication: COLON CANCER
     Dosage: 160 MG, QD
     Route: 048
     Dates: start: 20130723, end: 20130804
  2. BEZAFIBRATE [Concomitant]
     Dosage: UNK, QS
     Route: 048
  3. METFORMIN [Concomitant]
     Dosage: UNK, QS
     Route: 048
  4. GASTER [Concomitant]
     Dosage: UNK, QS
     Route: 048
  5. CELCOX [Concomitant]
     Dosage: UNK, QS
     Route: 048
  6. ATENOLOL [Concomitant]
     Dosage: UNK
     Route: 048
  7. VITAMINE D3 B.O.N. [Concomitant]
     Dosage: UNK, QS
     Route: 048
  8. RIBOVIX [Concomitant]
     Dosage: UNK, QS
     Route: 048

REACTIONS (9)
  - Blood creatine phosphokinase increased [Recovered/Resolved]
  - Blister [Recovering/Resolving]
  - Febrile neutropenia [Recovered/Resolved]
  - Liver function test abnormal [Recovering/Resolving]
  - Decreased appetite [Not Recovered/Not Resolved]
  - Diarrhoea [Recovering/Resolving]
  - Oedema [Recovering/Resolving]
  - Oedema peripheral [Recovered/Resolved]
  - Cheilitis [Recovered/Resolved]
